FAERS Safety Report 4609020-5 (Version None)
Quarter: 2005Q1

REPORT INFORMATION
  Report Type: 
  Country: None (occurrence: None)
  Receive Date: 20050311
  Receipt Date: 20050226
  Transmission Date: 20050727
  Serious: Yes (Congenital Anomaly, Other)
  Sender: FDA-Public Use
  Company Number: 2005022469

PATIENT
  Age: 58 Year
  Sex: Female
  Weight: 95.2554 kg

DRUGS (10)
  1. CELEBREX [Suspect]
     Indication: ARTHRITIS
     Dosage: 400 MG (200 MG, 2 IN 1 D), ORAL
     Route: 048
     Dates: start: 20010111, end: 20050101
  2. CELEBREX [Suspect]
     Indication: OSTEOARTHRITIS
     Dosage: 400 MG (200 MG, 2 IN 1 D), ORAL
     Route: 048
     Dates: start: 20010111, end: 20050101
  3. GLYBURIDE [Concomitant]
  4. METFORMIN HCL [Concomitant]
  5. VALSARTAN [Concomitant]
  6. PAROXETINE HCL [Concomitant]
  7. AMITRIPTYLINE HYDROCHLORIDE (AMITRYPTYLINE HYDROCHLORIDE) [Concomitant]
  8. METAXALONE [Concomitant]
  9. ESTRADIOL [Concomitant]
  10. METHYLPREDNISOLONE ACETATE [Concomitant]

REACTIONS (7)
  - CARDIAC DISORDER [None]
  - HEART RATE IRREGULAR [None]
  - HYSTERECTOMY [None]
  - JOINT EFFUSION [None]
  - JOINT SWELLING [None]
  - THYROID MASS [None]
  - VARICOSE VEIN [None]
